FAERS Safety Report 24468224 (Version 2)
Quarter: 2025Q3

REPORT INFORMATION
  Report Type: Spontaneous
  Country: EU (occurrence: EU)
  Receive Date: 20241018
  Receipt Date: 20250803
  Transmission Date: 20251021
  Serious: Yes (Hospitalization, Other)
  Sender: ALEXION PHARMACEUTICALS
  Company Number: None

PATIENT
  Age: 48 Year
  Sex: Female
  Weight: 73 kg

DRUGS (6)
  1. QUETIAPINE FUMARATE [Suspect]
     Active Substance: QUETIAPINE FUMARATE
     Indication: Intentional overdose
     Dates: start: 20240905, end: 20240905
  2. QUETIAPINE FUMARATE [Suspect]
     Active Substance: QUETIAPINE FUMARATE
     Dosage: 300 MILLIGRAM, QD
     Dates: start: 20240905, end: 20240905
  3. ARIPIPRAZOLE [Suspect]
     Active Substance: ARIPIPRAZOLE
     Indication: Intentional overdose
     Dates: start: 20240905, end: 20240905
  4. LORAZEPAM [Suspect]
     Active Substance: LORAZEPAM
     Indication: Intentional overdose
     Dates: start: 20240905, end: 20240905
  5. TERALITHE [Suspect]
     Active Substance: LITHIUM CARBONATE
     Indication: Intentional overdose
     Dates: start: 20240905, end: 20240905
  6. LAMOTRIGINE [Suspect]
     Active Substance: LAMOTRIGINE
     Indication: Intentional overdose
     Route: 065

REACTIONS (7)
  - Somnolence [Recovered/Resolved]
  - Poisoning deliberate [Recovered/Resolved]
  - Loss of consciousness [Unknown]
  - Major depression [Unknown]
  - Vomiting [Unknown]
  - Confusional state [Unknown]
  - Disorientation [Unknown]

NARRATIVE: CASE EVENT DATE: 20240905
